FAERS Safety Report 6071397-4 (Version None)
Quarter: 2009Q1

REPORT INFORMATION
  Report Type: 
  Country: None (occurrence: None)
  Receive Date: 20090209
  Receipt Date: 20090129
  Transmission Date: 20090719
  Serious: Yes (Hospitalization)
  Sender: FDA-Public Use
  Company Number: US-BAXTER-2009BH001724

PATIENT
  Age: 65 Year
  Sex: Female

DRUGS (1)
  1. DIANEAL [Suspect]
     Indication: PERITONEAL DIALYSIS
     Route: 033
     Dates: start: 20080401, end: 20090101

REACTIONS (3)
  - CATHETER RELATED COMPLICATION [None]
  - MALAISE [None]
  - MENTAL STATUS CHANGES [None]
